FAERS Safety Report 4689854-1 (Version None)
Quarter: 2005Q2

REPORT INFORMATION
  Report Type: 
  Country: None (occurrence: None)
  Receive Date: 20050614
  Receipt Date: 20050531
  Transmission Date: 20051028
  Serious: Yes (Disabling)
  Sender: FDA-Public Use
  Company Number: IT-AMGEN-UK136704

PATIENT
  Sex: Female
  Weight: 72 kg

DRUGS (11)
  1. AMG 099073 [Suspect]
     Indication: HYPERPARATHYROIDISM SECONDARY
     Route: 048
     Dates: start: 20050212, end: 20050503
  2. CALCIJEX [Concomitant]
     Route: 065
     Dates: start: 20050201, end: 20050226
  3. ROCALTROL [Concomitant]
     Route: 048
     Dates: start: 20010226
  4. LASIX [Concomitant]
     Route: 048
     Dates: start: 20030412
  5. ADALAT [Concomitant]
     Route: 048
  6. LESCOL [Concomitant]
     Route: 048
     Dates: start: 20031101
  7. CALCIUM CARBONATE [Concomitant]
     Route: 048
  8. RENAGEL [Concomitant]
     Route: 048
     Dates: start: 20030512
  9. ARANESP [Concomitant]
     Route: 058
  10. SODIUM FERRIC GLUCONATE COMPLEX [Concomitant]
     Route: 065
  11. OMEPRAZOLE [Concomitant]
     Route: 048
     Dates: start: 20040209

REACTIONS (2)
  - PAPILLOEDEMA [None]
  - VISUAL ACUITY REDUCED [None]
